FAERS Safety Report 9132428 (Version 1)
Quarter: 2013Q1

REPORT INFORMATION
  Report Type: Spontaneous
  Country: US (occurrence: US)
  Receive Date: 20130107
  Receipt Date: 20130107
  Transmission Date: 20140127
  Serious: No
  Sender: FDA-Public Use
  Company Number: US-ASTRAZENECA-2012SE95620

PATIENT
  Sex: Male

DRUGS (4)
  1. SYMBICORT [Suspect]
     Route: 055
  2. ADVAIR [Suspect]
     Route: 065
  3. COMBIVENT [Suspect]
     Route: 065
  4. SPIRIVA [Suspect]
     Route: 065

REACTIONS (2)
  - Visual impairment [Unknown]
  - Dysuria [Unknown]
